FAERS Safety Report 7458165-3 (Version None)
Quarter: 2011Q2

REPORT INFORMATION
  Report Type: 
  Country: None (occurrence: None)
  Receive Date: 20110504
  Receipt Date: 20110428
  Transmission Date: 20111010
  Serious: Yes (Death, Life-Threatening, Hospitalization)
  Sender: FDA-Public Use
  Company Number: PHHY2011JP18468

PATIENT
  Sex: Female

DRUGS (9)
  1. MAGMITT KENEI [Concomitant]
     Indication: CONSTIPATION
     Dosage: 990 MG, UNK
     Route: 048
     Dates: start: 20101225, end: 20110218
  2. TAKEPRON [Concomitant]
     Indication: OESOPHAGITIS
     Dosage: 15 MG, UNK
     Route: 048
     Dates: start: 20101217, end: 20110218
  3. FERROUS CITRATE [Concomitant]
     Indication: IRON DEFICIENCY ANAEMIA
     Dosage: 100 MG, UNK
     Route: 048
     Dates: start: 20110111, end: 20110218
  4. ETODOLAC [Concomitant]
     Indication: PAIN
     Dosage: 400 MG, UNK
     Route: 048
     Dates: start: 20101217, end: 20110218
  5. LASIX [Concomitant]
     Indication: OEDEMA
     Dosage: 40 MG, UNK
     Route: 048
     Dates: start: 20110208, end: 20110218
  6. FLOMAX [Concomitant]
     Indication: TUMOUR NECROSIS
     Dosage: 300 MG, UNK
     Route: 048
     Dates: start: 20101228, end: 20110112
  7. GLEEVEC [Suspect]
     Indication: GASTROINTESTINAL STROMAL TUMOUR
     Dosage: 400 MG, DAILY
     Route: 048
     Dates: start: 20101225, end: 20110218
  8. NOVAMIN [Concomitant]
     Indication: NAUSEA
     Dosage: 15 MG, UNK
     Route: 048
     Dates: start: 20101225, end: 20110218
  9. MUCOSTA [Concomitant]
     Indication: GASTRITIS
     Dosage: 200 MG, UNK
     Route: 048
     Dates: start: 20101217, end: 20110218

REACTIONS (19)
  - DEPRESSED LEVEL OF CONSCIOUSNESS [None]
  - PERITONITIS [None]
  - HEART RATE DECREASED [None]
  - GASTRITIS [None]
  - ABDOMINAL PAIN [None]
  - BLOOD UREA ABNORMAL [None]
  - NAUSEA [None]
  - HAEMOGLOBIN ABNORMAL [None]
  - CONSTIPATION [None]
  - ASCITES [None]
  - DYSPNOEA [None]
  - OESOPHAGITIS [None]
  - IRON DEFICIENCY ANAEMIA [None]
  - ABDOMINAL DISTENSION [None]
  - DECREASED APPETITE [None]
  - OEDEMA [None]
  - PAIN [None]
  - GASTROINTESTINAL PERFORATION [None]
  - TUMOUR NECROSIS [None]
